FAERS Safety Report 7911976-X (Version None)
Quarter: 2011Q4

REPORT INFORMATION
  Report Type: 
  Country: None (occurrence: None)
  Receive Date: 20111114
  Receipt Date: 20111103
  Transmission Date: 20120403
  Serious: Yes (Hospitalization)
  Sender: FDA-Public Use
  Company Number: US-JNJFOC-20111012186

PATIENT
  Sex: Male
  Weight: 52.7 kg

DRUGS (2)
  1. INFLIXIMAB, RECOMBINANT [Suspect]
     Indication: INFLAMMATORY BOWEL DISEASE
     Route: 042
     Dates: start: 20071101, end: 20080730
  2. PREDNISONE [Concomitant]

REACTIONS (2)
  - ABDOMINAL ABSCESS [None]
  - CROHN'S DISEASE [None]
